FAERS Safety Report 6055977-8 (Version None)
Quarter: 2009Q1

REPORT INFORMATION
  Report Type: 
  Country: None (occurrence: None)
  Receive Date: 20090128
  Receipt Date: 20090121
  Transmission Date: 20090719
  Serious: Yes (Hospitalization)
  Sender: FDA-Public Use
  Company Number: US-GILEAD-2009-0019932

PATIENT
  Sex: Female

DRUGS (10)
  1. LETAIRIS [Suspect]
     Indication: PULMONARY ARTERIAL HYPERTENSION
     Route: 048
     Dates: start: 20080428
  2. WARFARIN SODIUM [Concomitant]
  3. FUROSEMIDE [Concomitant]
  4. DIOVAN [Concomitant]
  5. ARTHROTEC [Concomitant]
  6. VITAMIN D [Concomitant]
  7. PRILOSEC [Concomitant]
  8. SINGULAIR [Concomitant]
  9. KLOR-CON [Concomitant]
  10. NASONEX [Concomitant]

REACTIONS (1)
  - GASTRIC BYPASS [None]
